FAERS Safety Report 4707407-3 (Version None)
Quarter: 2005Q3

REPORT INFORMATION
  Report Type: 
  Country: None (occurrence: None)
  Receive Date: 20050701
  Receipt Date: 20050620
  Transmission Date: 20060218
  Serious: Yes (Other)
  Sender: FDA-Public Use
  Company Number: 215465

PATIENT
  Age: 67 Year
  Sex: Male
  Weight: 53 kg

DRUGS (11)
  1. RITUXAN [Suspect]
     Indication: NON-HODGKIN'S LYMPHOMA
     Dosage: 550 MG, INTRAVENOUS
     Route: 042
     Dates: start: 20020227, end: 20020422
  2. CYCLOPHOSPHAMIDE [Suspect]
     Indication: NON-HODGKIN'S LYMPHOMA
     Dosage: 1100 MG, INTRAVENOUS
     Route: 042
     Dates: start: 20020301, end: 20020424
  3. ONCOVIN [Suspect]
     Indication: NON-HODGKIN'S LYMPHOMA
     Dosage: 2 MG, INTRAVENOUS
     Route: 042
     Dates: start: 20020301, end: 20020424
  4. PREDONINE(PREDNISOLONE ACETATE, PREDNISOLONE, PREDNISOLONE SODIUM SUCC [Suspect]
     Indication: NON-HODGKIN'S LYMPHOMA
     Dosage: 100 MG, ORAL
     Route: 048
     Dates: start: 20020301, end: 20020424
  5. LOXONIN (LOXOPROFEN SODIUM) [Concomitant]
  6. FAMOTIDINE [Concomitant]
  7. URSODIOL [Concomitant]
  8. WARFARIN SODIUM [Concomitant]
  9. LASIX [Concomitant]
  10. DILTIAZEM HYDROCHLORIDE [Concomitant]
  11. CHLOR-TRIMETON (CHLORPHENERAMINE MALEATE) [Concomitant]

REACTIONS (1)
  - NEUTROPENIA [None]
